FAERS Safety Report 20044036 (Version 6)
Quarter: 2023Q1

REPORT INFORMATION
  Report Type: Report from Study
  Country: PL (occurrence: PL)
  Receive Date: 20211108
  Receipt Date: 20230116
  Transmission Date: 20230418
  Serious: Yes (Hospitalization)
  Sender: FDA-Public Use
  Company Number: PL-NOVARTISPH-NVSC2021PL249569

PATIENT
  Age: 55 Year
  Sex: Female
  Weight: 64 kg

DRUGS (13)
  1. ALPELISIB [Suspect]
     Active Substance: ALPELISIB
     Indication: Triple negative breast cancer
     Dosage: 300 MG
     Route: 048
     Dates: start: 20210903
  2. PACLITAXEL [Suspect]
     Active Substance: PACLITAXEL
     Indication: Triple negative breast cancer
     Dosage: 169 MG, ONCE
     Route: 042
     Dates: start: 20210903
  3. UNSPECIFIED INGREDIENT [Suspect]
     Active Substance: UNSPECIFIED INGREDIENT
     Indication: Triple negative breast cancer
     Dosage: NO TREATMENT
     Route: 065
  4. FAMOGAST [Concomitant]
     Indication: Chemotherapy side effect prophylaxis
     Dosage: UNK
     Route: 065
     Dates: start: 20211001, end: 20211001
  5. FAMOGAST [Concomitant]
     Dosage: UNK
     Route: 065
     Dates: start: 20211008, end: 20211008
  6. FAMOGAST [Concomitant]
     Dosage: UNK
     Route: 065
     Dates: start: 20211015, end: 20211015
  7. GLIBETIC [Concomitant]
     Indication: Diabetes mellitus
     Dosage: UNK
     Route: 065
     Dates: start: 20211001
  8. DEXAMETHASONE [Concomitant]
     Active Substance: DEXAMETHASONE
     Indication: Chemotherapy side effect prophylaxis
     Dosage: UNK
     Route: 065
     Dates: start: 20211008, end: 20211008
  9. DEXAMETHASONE [Concomitant]
     Active Substance: DEXAMETHASONE
     Dosage: UNK
     Route: 065
     Dates: start: 20211015, end: 20211015
  10. DEXAMETHASONE [Concomitant]
     Active Substance: DEXAMETHASONE
     Dosage: UNK
     Route: 065
     Dates: start: 20211001, end: 20211001
  11. GLUCOPHAGE [Concomitant]
     Active Substance: METFORMIN HYDROCHLORIDE
     Indication: Diabetes mellitus
     Dosage: UNK
     Route: 065
     Dates: start: 20211001, end: 20220712
  12. ACTRAPID [Concomitant]
     Active Substance: INSULIN HUMAN
     Indication: Diabetes mellitus
     Dosage: UNK
     Route: 065
     Dates: start: 20211021, end: 20220712
  13. NYSTATIN [Concomitant]
     Active Substance: NYSTATIN
     Indication: Stomatitis
     Dosage: UNK
     Route: 065
     Dates: start: 20211015, end: 20211029

REACTIONS (1)
  - Diabetic metabolic decompensation [Recovered/Resolved]

NARRATIVE: CASE EVENT DATE: 20211021
